FAERS Safety Report 4846090-3 (Version None)
Quarter: 2005Q4

REPORT INFORMATION
  Report Type: 
  Country: None (occurrence: None)
  Receive Date: 20051201
  Receipt Date: 20051122
  Transmission Date: 20060501
  Serious: Yes (Disabling)
  Sender: FDA-Public Use
  Company Number: 2005123104

PATIENT
  Age: 51 Year
  Sex: Male
  Weight: 86 kg

DRUGS (4)
  1. CARDURA [Suspect]
     Indication: BENIGN PROSTATIC HYPERPLASIA
     Dosage: 4 MG (4 MG, DAILY), ORAL
     Route: 048
     Dates: start: 20050829
  2. ANAFRANIL [Concomitant]
  3. VICTAN (ETHYL LOFLAZEPATE) [Concomitant]
  4. OLMETEC (OLMESARTAN) [Concomitant]

REACTIONS (1)
  - RETROGRADE EJACULATION [None]
